FAERS Safety Report 8103233-6 (Version None)
Quarter: 2012Q1

REPORT INFORMATION
  Report Type: 
  Country: None (occurrence: None)
  Receive Date: 20120127
  Receipt Date: 20110902
  Transmission Date: 20120608
  Serious: Yes (Other)
  Sender: FDA-Public Use
  Company Number: 2011-1777

PATIENT
  Age: 49 Year
  Sex: Female
  Weight: 64 kg

DRUGS (8)
  1. DYSPORT [Suspect]
     Indication: SKIN COSMETIC PROCEDURE
     Dosage: 30 UNITS (30 UNITS, SINGLE CYCLE), 30 UNITS (30 UNITS, SINGLE CYCLE)
     Dates: start: 20110520, end: 20110520
  2. DYSPORT [Suspect]
     Indication: SKIN WRINKLING
     Dosage: 30 UNITS (30 UNITS, SINGLE CYCLE), 30 UNITS (30 UNITS, SINGLE CYCLE)
     Dates: start: 20110520, end: 20110520
  3. DYSPORT [Suspect]
     Indication: OFF LABEL USE
     Dosage: 30 UNITS (30 UNITS, SINGLE CYCLE), 30 UNITS (30 UNITS, SINGLE CYCLE)
     Dates: start: 20110520, end: 20110520
  4. DYSPORT [Suspect]
     Indication: SKIN COSMETIC PROCEDURE
     Dosage: 30 UNITS (30 UNITS, SINGLE CYCLE), 30 UNITS (30 UNITS, SINGLE CYCLE)
     Dates: start: 20110506, end: 20110506
  5. DYSPORT [Suspect]
     Indication: SKIN WRINKLING
     Dosage: 30 UNITS (30 UNITS, SINGLE CYCLE), 30 UNITS (30 UNITS, SINGLE CYCLE)
     Dates: start: 20110506, end: 20110506
  6. DYSPORT [Suspect]
     Indication: OFF LABEL USE
     Dosage: 30 UNITS (30 UNITS, SINGLE CYCLE), 30 UNITS (30 UNITS, SINGLE CYCLE)
     Dates: start: 20110506, end: 20110506
  7. MULTIVITAMIN (MULTIVITAMIN /00831701/ [Concomitant]
  8. FLAX SEED OIL (LINUM USITATISSIUMUM SEED OIL) [Concomitant]

REACTIONS (7)
  - INJECTION SITE MASS [None]
  - TOOTH FRACTURE [None]
  - WRONG TECHNIQUE IN DRUG USAGE PROCESS [None]
  - DIARRHOEA [None]
  - INJECTION SITE INDURATION [None]
  - MUSCLE TIGHTNESS [None]
  - HYPERSENSITIVITY [None]
